FAERS Safety Report 5413099-0 (Version None)
Quarter: 2007Q3

REPORT INFORMATION
  Report Type: 
  Country: None (occurrence: None)
  Receive Date: 20070813
  Receipt Date: 20070802
  Transmission Date: 20080115
  Serious: Yes (Other)
  Sender: FDA-Public Use
  Company Number: US-PFIZER INC-2007064009

PATIENT
  Age: 56 Year
  Sex: Female
  Weight: 70.3 kg

DRUGS (6)
  1. VARENICLINE [Suspect]
     Indication: EX-SMOKER
     Route: 048
  2. HYDROCHLOROTHIAZIDE [Concomitant]
  3. SIMVASTATIN [Concomitant]
  4. ATENOLOL [Concomitant]
  5. FLUOXETINE [Concomitant]
  6. CHONDROITIN/GLUCOSAMINE/METHYLSULFONYLMETHANE [Concomitant]

REACTIONS (1)
  - HYPERSENSITIVITY [None]
